FAERS Safety Report 9556458 (Version 1)
Quarter: 2013Q3

REPORT INFORMATION
  Report Type: Spontaneous
  Country: JP (occurrence: None)
  Receive Date: 20130924
  Receipt Date: 20130924
  Transmission Date: 20140515
  Serious: Yes (Hospitalization)
  Sender: FDA-Public Use
  Company Number: 2013S1001511

PATIENT
  Age: 66 Year
  Sex: Male
  Weight: 59 kg

DRUGS (12)
  1. LIVALO [Suspect]
     Indication: PERIPHERAL ARTERIAL OCCLUSIVE DISEASE
     Route: 048
     Dates: start: 20130708, end: 20130724
  2. BLINDED [Suspect]
     Indication: PERIPHERAL ARTERIAL OCCLUSIVE DISEASE
     Route: 048
     Dates: start: 20130121, end: 20130708
  3. LIVALO [Suspect]
     Indication: DYSLIPIDAEMIA
     Route: 048
  4. KINEDAK [Concomitant]
  5. METHYCOBAL [Concomitant]
  6. OLMETEC [Concomitant]
  7. ATELEC [Concomitant]
  8. RENIVACE [Concomitant]
  9. BAYASPIRIN [Concomitant]
  10. TAKEPRON [Concomitant]
  11. LANTUS [Concomitant]
  12. HUMALOG [Concomitant]

REACTIONS (12)
  - Diabetes mellitus [None]
  - Hiccups [None]
  - Choking sensation [None]
  - Nausea [None]
  - Hypophagia [None]
  - Blood pressure decreased [None]
  - Dizziness [None]
  - Discomfort [None]
  - Sinusitis [None]
  - Polyp [None]
  - Gastritis [None]
  - Helicobacter test positive [None]
